FAERS Safety Report 14673382 (Version 2)
Quarter: 2018Q1

REPORT INFORMATION
  Report Type: Spontaneous
  Country: CA (occurrence: CA)
  Receive Date: 20180323
  Receipt Date: 20180330
  Transmission Date: 20180509
  Serious: Yes (Death, Life-Threatening, Hospitalization)
  Sender: FDA-Public Use
  Company Number: CA-TEVA-2018-CA-873083

PATIENT
  Age: 58 Year
  Sex: Male

DRUGS (5)
  1. IMMUNOGLOBULINS NOS [Concomitant]
     Active Substance: IMMUNE GLOBULIN NOS
     Route: 042
  2. FLUDARABINE [Suspect]
     Active Substance: FLUDARABINE PHOSPHATE
     Route: 065
  3. BUSULFAN. [Suspect]
     Active Substance: BUSULFAN
     Route: 065
  4. CICLOSPORIN [Suspect]
     Active Substance: CYCLOSPORINE
     Route: 065
  5. DAPSONE. [Concomitant]
     Active Substance: DAPSONE
     Indication: ANTIFUNGAL PROPHYLAXIS
     Route: 065

REACTIONS (11)
  - Shock [Fatal]
  - Toxoplasmosis [Fatal]
  - Cytomegalovirus viraemia [Unknown]
  - Pneumonia cytomegaloviral [Unknown]
  - Cerebral ischaemia [Unknown]
  - Multiple organ dysfunction syndrome [Fatal]
  - Hypotension [Unknown]
  - Respiratory failure [Unknown]
  - Leukoencephalopathy [Unknown]
  - Cerebral toxoplasmosis [Unknown]
  - Diffuse alveolar damage [Unknown]
